FAERS Safety Report 24605014 (Version 2)
Quarter: 2025Q1

REPORT INFORMATION
  Report Type: Report from Study
  Country: US (occurrence: None)
  Receive Date: 20241111
  Receipt Date: 20250227
  Transmission Date: 20250408
  Serious: No
  Sender: INCYTE
  Company Number: US-INCYTE CORPORATION-2024IN011064

PATIENT

DRUGS (1)
  1. JAKAFI [Suspect]
     Active Substance: RUXOLITINIB
     Indication: Myelofibrosis
     Dosage: 20 MILLIGRAM, BID

REACTIONS (6)
  - Feeling abnormal [Unknown]
  - Chromaturia [Recovering/Resolving]
  - Wheezing [Unknown]
  - Confusional state [Unknown]
  - Product availability issue [Unknown]
  - Somnolence [Unknown]
